FAERS Safety Report 10019115 (Version 1)
Quarter: 2014Q1

REPORT INFORMATION
  Report Type: Spontaneous
  Country: US (occurrence: None)
  Receive Date: 20140314
  Receipt Date: 20140314
  Transmission Date: 20141002
  Serious: Yes (Other)
  Sender: FDA-Public Use
  Company Number: None

PATIENT
  Sex: 0

DRUGS (2)
  1. PREDNISOLONE ACETATE [Suspect]
     Route: 047
  2. DEXAMETHASONE SODIUM PHOSPHATE [Suspect]
     Route: 047

REACTIONS (1)
  - Circumstance or information capable of leading to medication error [None]
